FAERS Safety Report 8118049-4 (Version None)
Quarter: 2012Q1

REPORT INFORMATION
  Report Type: 
  Country: None (occurrence: None)
  Receive Date: 20120207
  Receipt Date: 20120203
  Transmission Date: 20120608
  Serious: No
  Sender: FDA-Public Use
  Company Number: US-PFIZER INC-2012030911

PATIENT
  Sex: Male
  Weight: 82 kg

DRUGS (9)
  1. SIMVASTATIN [Suspect]
     Indication: BLOOD CHOLESTEROL INCREASED
     Dosage: 20 MG, DAILY
     Dates: start: 20110101, end: 20110901
  2. PANTOPRAZOLE [Suspect]
     Indication: REFLUX GASTRITIS
     Dosage: 40 MG, 2X/DAY
     Dates: start: 20110101, end: 20110101
  3. ZANTAC [Suspect]
     Indication: GASTROINTESTINAL PAIN
  4. DIASTASE/PEPSIN [Suspect]
     Indication: REFLUX GASTRITIS
     Dosage: UNK
     Dates: start: 20110101, end: 20110101
  5. PANTOPRAZOLE [Suspect]
     Indication: GASTROINTESTINAL PAIN
  6. PROTONIX [Suspect]
     Indication: GASTROINTESTINAL PAIN
  7. PROTONIX [Suspect]
     Indication: REFLUX GASTRITIS
     Dosage: 40 MG, 2X/DAY
     Dates: start: 20110101, end: 20110101
  8. DIASTASE/PEPSIN [Suspect]
     Indication: GASTROINTESTINAL PAIN
  9. ZANTAC [Suspect]
     Indication: REFLUX GASTRITIS
     Dosage: UNK, DAILY
     Dates: start: 20110101, end: 20110101

REACTIONS (3)
  - REFLUX GASTRITIS [None]
  - GASTROINTESTINAL PAIN [None]
  - DRUG INEFFECTIVE [None]
